FAERS Safety Report 18722785 (Version 1)
Quarter: 2021Q1

REPORT INFORMATION
  Report Type: Spontaneous
  Country: CA (occurrence: CA)
  Receive Date: 20210111
  Receipt Date: 20210111
  Transmission Date: 20210419
  Serious: Yes (Other)
  Sender: FDA-Public Use
  Company Number: CA-ACCORD-213562

PATIENT
  Age: 73 Year
  Sex: Female

DRUGS (5)
  1. METHOTREXATE. [Suspect]
     Active Substance: METHOTREXATE
     Indication: PRODUCT USED FOR UNKNOWN INDICATION
     Route: 065
  2. ACETAMINOPHEN. [Concomitant]
     Active Substance: ACETAMINOPHEN
     Dosage: 4 EVERY 1 DAYS
     Route: 065
  3. CODEINE/PARACETAMOL [Concomitant]
     Active Substance: ACETAMINOPHEN\CODEINE PHOSPHATE
     Dosage: AS REQUIRED
     Route: 065
  4. GABAPENTIN. [Concomitant]
     Active Substance: GABAPENTIN
     Route: 065
  5. ARAVA [Concomitant]
     Active Substance: LEFLUNOMIDE
     Route: 065

REACTIONS (9)
  - Traumatic lung injury [Unknown]
  - Dysphonia [Unknown]
  - Nausea [Unknown]
  - Overdose [Unknown]
  - Systemic lupus erythematosus [Unknown]
  - Hypergammaglobulinaemia benign monoclonal [Unknown]
  - Mouth ulceration [Unknown]
  - Rheumatoid arthritis [Unknown]
  - Osteoarthritis [Unknown]
